FAERS Safety Report 4424963-3 (Version None)
Quarter: 2004Q3

REPORT INFORMATION
  Report Type: 
  Country: None (occurrence: None)
  Receive Date: 20040811
  Receipt Date: 20040811
  Transmission Date: 20050211
  Serious: Yes (Other)
  Sender: FDA-Public Use
  Company Number: None

PATIENT
  Age: 40 Year
  Sex: Female

DRUGS (1)
  1. TUBERCULIN PPD (MANTOUX) TUBERSOL [Suspect]
     Indication: SKIN TEST
     Dosage: 0.1 ML INTRADERMAL
     Route: 023

REACTIONS (5)
  - BLISTER [None]
  - HYPERAESTHESIA [None]
  - INJECTION SITE DISCOMFORT [None]
  - INJECTION SITE ERYTHEMA [None]
  - INJECTION SITE INDURATION [None]
